FAERS Safety Report 6917581-6 (Version None)
Quarter: 2010Q3

REPORT INFORMATION
  Report Type: 
  Country: None (occurrence: None)
  Receive Date: 20100806
  Receipt Date: 20100730
  Transmission Date: 20110219
  Serious: Yes (Hospitalization)
  Sender: FDA-Public Use
  Company Number: 2010MA001294

PATIENT
  Age: 26 Year
  Sex: Female

DRUGS (3)
  1. TRAMADOL HYDROCHLORIDE [Suspect]
     Indication: BACK PAIN
     Dosage: 50 MG; ; PO
     Route: 048
     Dates: start: 20100720, end: 20100722
  2. AMITRIPTYLINE HYDROCHLORIDE [Concomitant]
  3. DICLOFENAC [Concomitant]

REACTIONS (3)
  - GRAND MAL CONVULSION [None]
  - PRURITUS [None]
  - URTICARIA [None]
